FAERS Safety Report 19943135 (Version 1)
Quarter: 2021Q4

REPORT INFORMATION
  Report Type: 
  Country: None (occurrence: US)
  Receive Date: 20211012
  Receipt Date: 20211012
  Transmission Date: 20220304
  Serious: No
  Sender: FDA-Public Use
  Company Number: US-C B FLEET CO INC-202103-US-000962

PATIENT
  Age: 72 Year
  Sex: Female

DRUGS (2)
  1. MONISTAT 3 COMBINATION PACK 3-DAY IN PRE-FILLED APPLICATORS [Suspect]
     Active Substance: MICONAZOLE NITRATE
     Indication: Fungal infection
     Dosage: ONE DOSE VAGINALLY
     Route: 067
  2. DOXYCYCLINE [Concomitant]
     Active Substance: DOXYCYCLINE

REACTIONS (1)
  - Vulvovaginal pain [Recovering/Resolving]
